FAERS Safety Report 19178273 (Version 3)
Quarter: 2021Q2

REPORT INFORMATION
  Report Type: Spontaneous
  Country: US (occurrence: US)
  Receive Date: 20210426
  Receipt Date: 20210604
  Transmission Date: 20210717
  Serious: No
  Sender: FDA-Public Use
  Company Number: US-KINDEVA DRUG DELIVERY L.P.-2109789

PATIENT
  Age: 61 Year
  Sex: Female

DRUGS (5)
  1. COREG [Suspect]
     Active Substance: CARVEDILOL
  2. ALBUTEROL SULFATE HFA [Suspect]
     Active Substance: ALBUTEROL SULFATE
  3. ENTRESTO [Suspect]
     Active Substance: SACUBITRIL\VALSARTAN
     Route: 048
  4. ALBUTEROL SULFATE. [Suspect]
     Active Substance: ALBUTEROL SULFATE
  5. OXYGEN. [Suspect]
     Active Substance: OXYGEN

REACTIONS (9)
  - Physiotherapy [Unknown]
  - Dehydration [Unknown]
  - COVID-19 [Unknown]
  - Cough [Unknown]
  - Decreased activity [Unknown]
  - Dizziness [Unknown]
  - Dyspnoea [Unknown]
  - Oxygen therapy [Unknown]
  - Dizziness [Unknown]

NARRATIVE: CASE EVENT DATE: 20210428
